FAERS Safety Report 26148620 (Version 1)
Quarter: 2025Q4

REPORT INFORMATION
  Report Type: Spontaneous
  Country: US (occurrence: US)
  Receive Date: 20251212
  Receipt Date: 20251212
  Transmission Date: 20260118
  Serious: No
  Sender: BRISTOL-MYERS SQUIBB COMPANY
  Company Number: US-BRISTOL-MYERS SQUIBB COMPANY-2025-167181

PATIENT
  Sex: Female

DRUGS (2)
  1. COBENFY [Suspect]
     Active Substance: TROSPIUM CHLORIDE\XANOMELINE
     Indication: Product used for unknown indication
     Dosage: DOSE: 50MG/20MG
  2. COBENFY [Suspect]
     Active Substance: TROSPIUM CHLORIDE\XANOMELINE
     Dosage: DOSE: 50MG/20MG

REACTIONS (3)
  - Off label use [Unknown]
  - Stomatitis [Not Recovered/Not Resolved]
  - Pruritus [Not Recovered/Not Resolved]
